FAERS Safety Report 15882964 (Version 1)
Quarter: 2019Q1

REPORT INFORMATION
  Report Type: Spontaneous
  Country: US (occurrence: US)
  Receive Date: 20190129
  Receipt Date: 20190129
  Transmission Date: 20190417
  Serious: No
  Sender: FDA-Public Use
  Company Number: US-TRIS PHARMA, INC.-2018TRISPO01414

PATIENT

DRUGS (1)
  1. IBUPROFEN. [Suspect]
     Active Substance: IBUPROFEN
     Indication: PRODUCT USED FOR UNKNOWN INDICATION
     Dosage: 1.875 ML, UNK
     Route: 065
     Dates: start: 20181105, end: 20181115

REACTIONS (3)
  - Vomiting projectile [Unknown]
  - Malaise [Unknown]
  - Hypophagia [Unknown]

NARRATIVE: CASE EVENT DATE: 201811
